FAERS Safety Report 18254890 (Version 1)
Quarter: 2020Q3

REPORT INFORMATION
  Report Type: Spontaneous
  Country: GB (occurrence: GB)
  Receive Date: 20200911
  Receipt Date: 20200911
  Transmission Date: 20201103
  Serious: Yes (Other)
  Sender: FDA-Public Use
  Company Number: GB-AUROBINDO-AUR-APL-2020-046961

PATIENT
  Age: 20 Year
  Sex: Female
  Weight: 48.8 kg

DRUGS (2)
  1. CLARITHROMYCIN. [Suspect]
     Active Substance: CLARITHROMYCIN
     Indication: TONSILLITIS
     Dosage: 1000 MILLIGRAM, ONCE A DAY
     Route: 048
     Dates: start: 20200821, end: 20200823
  2. AMITRIPTYLINE [Concomitant]
     Active Substance: AMITRIPTYLINE
     Indication: PRODUCT USED FOR UNKNOWN INDICATION
     Dosage: 10 MILLIGRAM, ONCE A DAY (AT NIGHT)
     Route: 065

REACTIONS (12)
  - Depression [Unknown]
  - Abdominal pain upper [Unknown]
  - Anxiety [Unknown]
  - Disorientation [Unknown]
  - Tremor [Unknown]
  - Decreased appetite [Unknown]
  - Nausea [Unknown]
  - Suicidal ideation [Unknown]
  - Confusional state [Unknown]
  - Insomnia [Unknown]
  - Dizziness [Unknown]
  - Non-cardiac chest pain [Unknown]

NARRATIVE: CASE EVENT DATE: 20200822
